FAERS Safety Report 7941818-8 (Version None)
Quarter: 2011Q4

REPORT INFORMATION
  Report Type: 
  Country: None (occurrence: None)
  Receive Date: 20111128
  Receipt Date: 20111114
  Transmission Date: 20120403
  Serious: Yes (Death)
  Sender: FDA-Public Use
  Company Number: JP-EISAI INC-E7389-01744-SPO-JP

PATIENT
  Age: 66 Year
  Sex: Female

DRUGS (1)
  1. HALAVEN [Suspect]
     Indication: METASTASES TO LIVER
     Route: 041
     Dates: start: 20111027, end: 20111027

REACTIONS (1)
  - HEPATIC FAILURE [None]
